FAERS Safety Report 4762818-5 (Version None)
Quarter: 2005Q3

REPORT INFORMATION
  Report Type: 
  Country: None (occurrence: None)
  Receive Date: 20050907
  Receipt Date: 20050831
  Transmission Date: 20060218
  Serious: Yes (Death, Other)
  Sender: FDA-Public Use
  Company Number: PHBS2005IN12829

PATIENT
  Age: 42 Year
  Sex: Male

DRUGS (9)
  1. FLUDARABINE PHOSPHATE [Concomitant]
  2. ANTITHYMOCYTE IMMUNOGLOBULIN [Concomitant]
  3. BUSULFAN [Concomitant]
  4. METHOTREXATE [Concomitant]
  5. MYCOPHENOLATE MOFETIL [Suspect]
     Indication: GRAFT VERSUS HOST DISEASE
  6. SIROLIMUS [Suspect]
     Indication: GRAFT VERSUS HOST DISEASE
  7. GANCICLOVIR [Concomitant]
  8. CORTICOSTEROIDS [Suspect]
     Indication: GRAFT VERSUS HOST DISEASE
     Dosage: HIGH DOSE
  9. CYCLOSPORINE [Suspect]
     Indication: ALLOGENIC BONE MARROW TRANSPLANTATION THERAPY

REACTIONS (5)
  - CHEST X-RAY ABNORMAL [None]
  - GRAFT VERSUS HOST DISEASE [None]
  - PNEUMONIA FUNGAL [None]
  - RESPIRATORY FAILURE [None]
  - TACHYPNOEA [None]
